FAERS Safety Report 24917767 (Version 2)
Quarter: 2025Q3

REPORT INFORMATION
  Report Type: Report from Study
  Country: CO (occurrence: CO)
  Receive Date: 20250203
  Receipt Date: 20250802
  Transmission Date: 20251020
  Serious: Yes (Death, Other)
  Sender: ALEXION PHARMACEUTICALS
  Company Number: CO-AstraZeneca-CH-00795037A

PATIENT
  Age: 62 Year
  Sex: Female

DRUGS (1)
  1. DURVALUMAB [Suspect]
     Active Substance: DURVALUMAB
     Indication: Bile duct cancer
     Dosage: 1500 MILLIGRAM, QMONTH
     Dates: start: 20241217

REACTIONS (2)
  - Disease progression [Fatal]
  - Death [Fatal]

NARRATIVE: CASE EVENT DATE: 20250105
